FAERS Safety Report 14683341 (Version 1)
Quarter: 2018Q1

REPORT INFORMATION
  Report Type: Spontaneous
  Country: US (occurrence: US)
  Receive Date: 20180327
  Receipt Date: 20180327
  Transmission Date: 20180509
  Serious: No
  Sender: FDA-Public Use
  Company Number: US-PFIZER INC-2018119962

PATIENT
  Age: 63 Year
  Sex: Male
  Weight: 81.63 kg

DRUGS (2)
  1. CHANTIX [Suspect]
     Active Substance: VARENICLINE TARTRATE
     Dosage: 1.7 MG, UNK
     Route: 048
     Dates: start: 20180319, end: 20180319
  2. CHANTIX [Suspect]
     Active Substance: VARENICLINE TARTRATE
     Indication: SMOKING CESSATION THERAPY
     Dosage: UNK
     Dates: start: 2015

REACTIONS (5)
  - Tremor [Recovered/Resolved]
  - Intentional product misuse [Unknown]
  - Feeling jittery [Recovered/Resolved]
  - Expired product administered [Unknown]
  - Diarrhoea [Recovered/Resolved]

NARRATIVE: CASE EVENT DATE: 20180319
